FAERS Safety Report 5131382-3 (Version None)
Quarter: 2006Q4

REPORT INFORMATION
  Report Type: 
  Country: None (occurrence: None)
  Receive Date: 20061016
  Receipt Date: 20061002
  Transmission Date: 20070319
  Serious: Yes (Death)
  Sender: FDA-Public Use
  Company Number: 2006BH013708

PATIENT
  Age: 47 Year
  Sex: Male

DRUGS (2)
  1. ATIVAN [Suspect]
     Indication: AGITATION
     Dosage: SEE IMAGE
     Route: 030
  2. ZYPREXA [Suspect]
     Indication: AGITATION
     Dosage: SEE IMAGE

REACTIONS (1)
  - LOSS OF CONSCIOUSNESS [None]
